FAERS Safety Report 8930440 (Version 1)
Quarter: 2012Q4

REPORT INFORMATION
  Report Type: 
  Country: US (occurrence: US)
  Receive Date: 20121128
  Receipt Date: 20121128
  Transmission Date: 20130627
  Serious: Yes (Other)
  Sender: FDA-Public Use
  Company Number: US-TEVA-372358USA

PATIENT
  Sex: Female

DRUGS (3)
  1. GIANVI [Suspect]
  2. YASMIN [Suspect]
  3. YAZ [Suspect]

REACTIONS (4)
  - Deep vein thrombosis [Unknown]
  - Pulmonary embolism [Unknown]
  - Renal failure [Unknown]
  - Transaminases increased [Unknown]
